FAERS Safety Report 9827715 (Version 3)
Quarter: 2014Q2

REPORT INFORMATION
  Report Type: Report from Study
  Country: BE (occurrence: BE)
  Receive Date: 20140117
  Receipt Date: 20140401
  Transmission Date: 20141212
  Serious: Yes (Hospitalization)
  Sender: FDA-Public Use
  Company Number: BE-AMGEN-BELCT2014003275

PATIENT
  Age: 62 Year
  Sex: Female

DRUGS (4)
  1. ETANERCEPT [Suspect]
     Indication: RHEUMATOID ARTHRITIS
     Dosage: 25 MG, 2 TIMES/WK
     Route: 058
     Dates: start: 20031224, end: 20061103
  2. ETANERCEPT [Suspect]
     Dosage: 25 MG, QWK
     Route: 058
     Dates: start: 20061204
  3. LEDERTREXATE                       /00113801/ [Concomitant]
     Dosage: UNK
     Route: 048
     Dates: start: 1995
  4. PREDNISOLON                        /00016201/ [Concomitant]
     Dosage: UNK
     Route: 048
     Dates: start: 1987

REACTIONS (3)
  - Headache [Recovered/Resolved]
  - Weight increased [Recovered/Resolved]
  - Depression suicidal [Recovering/Resolving]
